FAERS Safety Report 5775674-3 (Version None)
Quarter: 2008Q2

REPORT INFORMATION
  Report Type: 
  Country: None (occurrence: None)
  Receive Date: 20080617
  Receipt Date: 20080611
  Transmission Date: 20081010
  Serious: Yes (Other)
  Sender: FDA-Public Use
  Company Number: FR-WYE-H04429208

PATIENT
  Sex: Male
  Weight: 95 kg

DRUGS (4)
  1. RAPAMUNE [Suspect]
     Indication: PROPHYLAXIS AGAINST TRANSPLANT REJECTION
     Route: 048
     Dates: start: 20080406
  2. AMAREL [Concomitant]
     Indication: DIABETES MELLITUS
     Dosage: UNSPECIFIED
     Dates: start: 20080323
  3. BACTRIM [Concomitant]
     Indication: INFECTION PROPHYLAXIS
     Dosage: UNSPECIFIED
     Dates: start: 20080406
  4. PROPRANOLOL [Concomitant]
     Indication: HYPERTENSION
     Dosage: UNSPECIFIED
     Dates: start: 20080303

REACTIONS (1)
  - ASCITES [None]
